FAERS Safety Report 7736575-4 (Version None)
Quarter: 2011Q3

REPORT INFORMATION
  Report Type: 
  Country: None (occurrence: None)
  Receive Date: 20110908
  Receipt Date: 20110830
  Transmission Date: 20111222
  Serious: Yes (Death, Other)
  Sender: FDA-Public Use
  Company Number: RU-SANOFI-AVENTIS-2011SA057712

PATIENT
  Sex: Male

DRUGS (7)
  1. FLUDARABINE PHOSPHATE [Suspect]
     Route: 048
  2. FLUDARABINE PHOSPHATE [Suspect]
     Route: 048
  3. FLUDARABINE PHOSPHATE [Suspect]
     Route: 048
  4. FLUDARABINE PHOSPHATE [Suspect]
     Route: 048
  5. FLUDARABINE PHOSPHATE [Suspect]
     Route: 048
  6. FLUDARABINE PHOSPHATE [Suspect]
     Route: 048
  7. FLUDARABINE PHOSPHATE [Suspect]
     Route: 048

REACTIONS (2)
  - DEATH [None]
  - RASH [None]
